FAERS Safety Report 13205129 (Version 1)
Quarter: 2017Q1

REPORT INFORMATION
  Report Type: Spontaneous
  Country: US (occurrence: US)
  Receive Date: 20170208
  Receipt Date: 20170208
  Transmission Date: 20170428
  Serious: Yes (Other)
  Sender: FDA-Public Use
  Company Number: None

PATIENT
  Age: 66 Year
  Sex: Female
  Weight: 74.6 kg

DRUGS (2)
  1. CARBOPLATIN 600MG TEVA [Suspect]
     Active Substance: CARBOPLATIN
     Indication: MALIGNANT PERITONEAL NEOPLASM
     Route: 042
     Dates: start: 20161115, end: 20170117
  2. PACLITAXEL. [Concomitant]
     Active Substance: PACLITAXEL

REACTIONS (3)
  - Flushing [None]
  - Erythema [None]
  - Pruritus [None]

NARRATIVE: CASE EVENT DATE: 20170117
